FAERS Safety Report 6145118-0 (Version None)
Quarter: 2009Q2

REPORT INFORMATION
  Report Type: 
  Country: None (occurrence: None)
  Receive Date: 20090406
  Receipt Date: 20090403
  Transmission Date: 20091009
  Serious: Yes (Death, Life-Threatening, Hospitalization)
  Sender: FDA-Public Use
  Company Number: DE-WYE-G02997409

PATIENT
  Sex: Male

DRUGS (2)
  1. REFACTO [Suspect]
     Indication: FACTOR VIII DEFICIENCY
     Dosage: UNKNOWN
     Route: 042
     Dates: end: 20081219
  2. REFACTO [Suspect]
     Dosage: 148000 IU IN TOTAL
     Route: 042
     Dates: start: 20081220, end: 20090123

REACTIONS (2)
  - HEPATIC FAILURE [None]
  - OESOPHAGEAL VARICES HAEMORRHAGE [None]
